FAERS Safety Report 24669385 (Version 1)
Quarter: 2024Q4

REPORT INFORMATION
  Report Type: Spontaneous
  Country: US (occurrence: US)
  Receive Date: 20241127
  Receipt Date: 20241127
  Transmission Date: 20250114
  Serious: Yes (Other)
  Sender: BIOGEN
  Company Number: US-BIOGEN-2024BI01291414

PATIENT
  Age: 24 Year
  Sex: Female

DRUGS (1)
  1. SPINRAZA [Suspect]
     Active Substance: NUSINERSEN
     Indication: Spinal muscular atrophy
     Route: 050
     Dates: start: 201811

REACTIONS (3)
  - Pre-eclampsia [Unknown]
  - Anaemia [Unknown]
  - Maternal exposure during pregnancy [Recovered/Resolved]
